FAERS Safety Report 8377739-9 (Version None)
Quarter: 2012Q2

REPORT INFORMATION
  Report Type: 
  Country: None (occurrence: None)
  Receive Date: 20120522
  Receipt Date: 20120514
  Transmission Date: 20120825
  Serious: Yes (Hospitalization)
  Sender: FDA-Public Use
  Company Number: JP-GLAXOSMITHKLINE-B0802149A

PATIENT
  Sex: Female

DRUGS (12)
  1. POLYFUL [Concomitant]
     Dosage: 1500MG PER DAY
     Route: 048
  2. UNKNOWN [Concomitant]
     Dosage: .5MCG PER DAY
     Route: 048
  3. EVISTA [Concomitant]
     Dosage: 60MG PER DAY
     Route: 048
  4. SITAGLIPTIN PHOSPHATE [Concomitant]
     Dosage: 50MG PER DAY
     Route: 048
  5. MICARDIS [Concomitant]
     Dosage: 80MG PER DAY
     Route: 048
  6. PRORENAL [Concomitant]
     Dosage: 15MCG PER DAY
     Route: 048
  7. VITAMIN B12 [Concomitant]
     Dosage: 1500MCG PER DAY
     Route: 048
  8. CINAL [Concomitant]
     Dosage: 3G PER DAY
     Route: 048
  9. AMLODIPINE BESYLATE [Concomitant]
     Dosage: 10MG PER DAY
     Route: 048
  10. LIVALO [Concomitant]
     Dosage: 1MG PER DAY
     Route: 048
  11. VALTREX [Suspect]
     Indication: HERPES ZOSTER
     Dosage: 3000MG PER DAY
     Route: 048
     Dates: start: 20120509, end: 20120512
  12. ZETIA [Concomitant]
     Dosage: 10MG PER DAY
     Route: 048

REACTIONS (3)
  - DEHYDRATION [None]
  - RESTLESSNESS [None]
  - DELIRIUM [None]
